FAERS Safety Report 17694886 (Version 1)
Quarter: 2020Q2

REPORT INFORMATION
  Report Type: Spontaneous
  Country: US (occurrence: US)
  Receive Date: 20200422
  Receipt Date: 20200422
  Transmission Date: 20200714
  Serious: No
  Sender: FDA-Public Use
  Company Number: US-GENUS_LIFESCIENCES-USA-POI0580202000194

PATIENT
  Age: 39 Year
  Sex: Female

DRUGS (7)
  1. VITAMIN D3 PLUS K2 [Concomitant]
  2. TIVORBEX [Suspect]
     Active Substance: INDOMETHACIN
     Indication: NECK PAIN
     Route: 048
     Dates: start: 201906, end: 201906
  3. OMEGA-3 ACIDS [Concomitant]
     Active Substance: OMEGA-3 FATTY ACIDS
     Indication: PRODUCT USED FOR UNKNOWN INDICATION
  4. TIVORBEX [Suspect]
     Active Substance: INDOMETHACIN
     Indication: HEADACHE
     Route: 048
     Dates: start: 201906, end: 20190628
  5. VITAMIN B12 [Concomitant]
     Active Substance: CYANOCOBALAMIN
  6. MAGNESIUM [Concomitant]
     Active Substance: MAGNESIUM
     Indication: PRODUCT USED FOR UNKNOWN INDICATION
  7. TYLENOL [Concomitant]
     Active Substance: ACETAMINOPHEN

REACTIONS (9)
  - Abdominal distension [Recovered/Resolved]
  - Faeces discoloured [Unknown]
  - Retching [Unknown]
  - Paraesthesia [Unknown]
  - Wheezing [Recovered/Resolved]
  - Choking [Unknown]
  - Tongue disorder [Recovered/Resolved]
  - Diarrhoea [Recovered/Resolved]
  - Vomiting [Recovered/Resolved]

NARRATIVE: CASE EVENT DATE: 201906
